FAERS Safety Report 9493044 (Version 4)
Quarter: 2013Q4

REPORT INFORMATION
  Report Type: Spontaneous
  Country: US (occurrence: US)
  Receive Date: 20130902
  Receipt Date: 20131121
  Transmission Date: 20140711
  Serious: Yes (Hospitalization)
  Sender: FDA-Public Use
  Company Number: US-BIOGENIDEC-2013BI080021

PATIENT
  Age: 62 Year
  Sex: Female

DRUGS (2)
  1. TECFIDERA [Suspect]
     Indication: RELAPSING-REMITTING MULTIPLE SCLEROSIS
     Route: 048
     Dates: start: 20130719
  2. TECFIDERA [Suspect]
     Indication: RELAPSING-REMITTING MULTIPLE SCLEROSIS
     Route: 048
     Dates: start: 20130726, end: 20130827

REACTIONS (7)
  - Vomiting [Unknown]
  - Nausea [Unknown]
  - Hypotension [Unknown]
  - Gastrointestinal disorder [Unknown]
  - Prescribed underdose [Unknown]
  - Hypokalaemia [Unknown]
  - Hypovolaemia [Unknown]
